FAERS Safety Report 4957475-9 (Version None)
Quarter: 2006Q1

REPORT INFORMATION
  Report Type: 
  Country: None (occurrence: None)
  Receive Date: 20060330
  Receipt Date: 20060327
  Transmission Date: 20060701
  Serious: Yes (Other)
  Sender: FDA-Public Use
  Company Number: IE-BOEHRINGER INGELHEIM PHARMACEUTICALS, INC.-2006-UK-01557IE

PATIENT
  Sex: Male

DRUGS (1)
  1. MICARDIS [Suspect]

REACTIONS (2)
  - ANGIONEUROTIC OEDEMA [None]
  - PHARYNGITIS [None]
